FAERS Safety Report 6954952-6 (Version None)
Quarter: 2010Q3

REPORT INFORMATION
  Report Type: 
  Country: None (occurrence: None)
  Receive Date: 20100830
  Receipt Date: 20100816
  Transmission Date: 20110219
  Serious: Yes (Hospitalization)
  Sender: FDA-Public Use
  Company Number: AU-RANBAXY-2010RR-37559

PATIENT
  Age: 82 Year
  Sex: Male

DRUGS (1)
  1. GLIMEPIRIDE [Suspect]
     Dosage: 8 MG, UNK
     Route: 048

REACTIONS (2)
  - ACCIDENTAL EXPOSURE [None]
  - HYPOGLYCAEMIA [None]
